FAERS Safety Report 9185314 (Version 1)
Quarter: 2012Q4

REPORT INFORMATION
  Report Type: 
  Country: US (occurrence: US)
  Receive Date: 20121101
  Receipt Date: 20121101
  Transmission Date: 20130627
  Serious: Yes (Other)
  Sender: FDA-Public Use
  Company Number: US-BAYER-2012-110809

PATIENT
  Age: 62 Year
  Sex: Male
  Weight: 86 kg

DRUGS (6)
  1. BAYER ASPIRIN [Suspect]
     Indication: MYOCARDIAL INFARCT PROPHYLAXIS
     Dosage: 1 DF, QD, bottle count 150s
     Dates: start: 1989
  2. NIACIN [Concomitant]
  3. TOPROL TARTRATE [Concomitant]
  4. ONE A DAY MEN^S HEALTH FORMULA [Concomitant]
  5. ROSUVASTATIN [Concomitant]
  6. CLOPIDOGREL BISULFATE [Concomitant]

REACTIONS (2)
  - Myocardial infarction [Recovered/Resolved]
  - Therapeutic response unexpected [None]
